FAERS Safety Report 10949321 (Version 2)
Quarter: 2015Q2

REPORT INFORMATION
  Report Type: Spontaneous
  Country: GB (occurrence: None)
  Receive Date: 20150320
  Receipt Date: 20150521
  Transmission Date: 20150821
  Serious: Yes (Hospitalization)
  Sender: FDA-Public Use
  Company Number: FK201501281

PATIENT
  Sex: Female

DRUGS (2)
  1. INTRALIPID [Suspect]
     Active Substance: EGG PHOSPHOLIPIDS\GLYCERIN\SOYBEAN OIL
     Indication: PREVENTIVE SURGERY
     Dates: start: 20150307
  2. 0.9% SODIUM CHLORIDE [Suspect]
     Active Substance: SODIUM CHLORIDE
     Indication: PREVENTIVE SURGERY
     Dates: start: 20150307

REACTIONS (10)
  - Tachycardia [None]
  - Abortion [None]
  - Product process control issue [None]
  - Product sterility lacking [None]
  - Klebsiella infection [None]
  - Feeling cold [None]
  - Tremor [None]
  - Product contamination microbial [None]
  - Pyrexia [None]
  - Vomiting [None]
